FAERS Safety Report 16323165 (Version 1)
Quarter: 2019Q2

REPORT INFORMATION
  Report Type: Spontaneous
  Country: NL (occurrence: NL)
  Receive Date: 20190517
  Receipt Date: 20190517
  Transmission Date: 20190711
  Serious: Yes (Hospitalization)
  Sender: FDA-Public Use
  Company Number: NL-TEVA-2019-NL-1050733

PATIENT
  Age: 66 Year
  Sex: Male
  Weight: 61 kg

DRUGS (8)
  1. OSVAREN [Concomitant]
     Active Substance: CALCIUM ACETATE\MAGNESIUM CARBONATE
  2. FLUCONAZOL 200MG [Suspect]
     Active Substance: FLUCONAZOLE
     Indication: URINARY TRACT INFECTION FUNGAL
     Dosage: 200 MILLIGRAM DAILY;
     Dates: start: 20190320, end: 20190325
  3. BUMETANIDE. [Concomitant]
     Active Substance: BUMETANIDE
  4. PREDNISOLON [Concomitant]
     Active Substance: PREDNISOLONE
  5. CELCEPT [Concomitant]
  6. ALFACALCIDOL [Concomitant]
     Active Substance: ALFACALCIDOL
  7. COLCHICINE. [Concomitant]
     Active Substance: COLCHICINE
  8. DOXAZOZINE [Concomitant]

REACTIONS (5)
  - Dyspnoea [Recovering/Resolving]
  - Sleep apnoea syndrome [Recovering/Resolving]
  - Nausea [Recovering/Resolving]
  - Ageusia [Recovering/Resolving]
  - Nightmare [Recovering/Resolving]
